FAERS Safety Report 9114839 (Version 6)
Quarter: 2014Q2

REPORT INFORMATION
  Report Type: Spontaneous
  Country: US (occurrence: US)
  Receive Date: 20130208
  Receipt Date: 20140630
  Transmission Date: 20141212
  Serious: No
  Sender: FDA-Public Use
  Company Number: US-009507513-1302USA002878

PATIENT
  Sex: Female
  Weight: 118.82 kg

DRUGS (2)
  1. NUVARING [Suspect]
     Indication: CONTRACEPTION
     Dosage: UNK
     Route: 067
     Dates: start: 20090204, end: 20090611
  2. NUVARING [Suspect]
     Indication: CONTRACEPTION
     Dosage: UNK
     Route: 067
     Dates: start: 20070622, end: 200712

REACTIONS (5)
  - Coagulopathy [Unknown]
  - Deep vein thrombosis [Recovered/Resolved]
  - Off label use [Unknown]
  - Infertility [Unknown]
  - Muscle strain [Unknown]
